FAERS Safety Report 7979535-0 (Version None)
Quarter: 2011Q4

REPORT INFORMATION
  Report Type: 
  Country: None (occurrence: None)
  Receive Date: 20111214
  Receipt Date: 20111201
  Transmission Date: 20120403
  Serious: Yes (Other)
  Sender: FDA-Public Use
  Company Number: PHEH2011US010687

PATIENT
  Age: 3 Year
  Sex: Male

DRUGS (2)
  1. DIASTAT [Concomitant]
     Dosage: AS NEEDED
     Route: 054
  2. OXCARBAZEPINE [Suspect]
     Dosage: 300 MG, BID
     Route: 048
     Dates: start: 20101224

REACTIONS (1)
  - BRAIN NEOPLASM [None]
